FAERS Safety Report 5088609-6 (Version None)
Quarter: 2006Q3

REPORT INFORMATION
  Report Type: 
  Country: None (occurrence: None)
  Receive Date: 20060825
  Receipt Date: 20060815
  Transmission Date: 20061208
  Serious: Yes (Death, Hospitalization)
  Sender: FDA-Public Use
  Company Number: US-BAYER-200613453BCC

PATIENT
  Age: 45 Year
  Sex: Male
  Weight: 85 kg

DRUGS (10)
  1. ALEVE (CAPLET) [Suspect]
     Indication: SCROTAL PAIN
     Route: 048
     Dates: start: 20060101
  2. AZATHIOPRINE [Suspect]
     Indication: COLITIS ULCERATIVE
     Dosage: TOTAL DAILY DOSE: 150 MG  UNIT DOSE: 50 MG
     Route: 048
     Dates: start: 20050801
  3. AZATHIOPRINE [Suspect]
     Dosage: UNIT DOSE: 50 MG
     Route: 048
     Dates: end: 20050801
  4. REMICADE [Suspect]
     Indication: COLITIS ULCERATIVE
     Route: 042
     Dates: start: 20060307
  5. REMICADE [Suspect]
     Route: 042
     Dates: start: 20060321
  6. REMICADE [Suspect]
     Route: 042
     Dates: start: 20060418
  7. COLAZAL [Suspect]
     Indication: COLITIS ULCERATIVE
  8. EXTRA STRENGTH TYLENOL [Suspect]
     Indication: SCROTAL PAIN
     Route: 048
     Dates: start: 20060501
  9. DOXYCYCLINE [Suspect]
     Indication: SCROTAL INFECTION
     Dates: start: 20060501
  10. ADVIL [Suspect]
     Indication: SCROTAL PAIN
     Route: 048
     Dates: start: 20060101

REACTIONS (13)
  - ABDOMINAL DISTENSION [None]
  - ASCITES [None]
  - AZOTAEMIA [None]
  - BLOOD PRESSURE INCREASED [None]
  - DIALYSIS [None]
  - FEELING COLD [None]
  - HAEMOGLOBIN DECREASED [None]
  - HEPATIC ENZYME INCREASED [None]
  - HEPATIC FAILURE [None]
  - MEMORY IMPAIRMENT [None]
  - OEDEMA PERIPHERAL [None]
  - PLATELET COUNT DECREASED [None]
  - RENAL FAILURE [None]
